FAERS Safety Report 13410784 (Version 2)
Quarter: 2018Q1

REPORT INFORMATION
  Report Type: Spontaneous
  Country: US (occurrence: US)
  Receive Date: 20170406
  Receipt Date: 20180118
  Transmission Date: 20180508
  Serious: No
  Sender: FDA-Public Use
  Company Number: US-JNJFOC-20170307968

PATIENT
  Sex: Male

DRUGS (37)
  1. RISPERDAL [Suspect]
     Active Substance: RISPERIDONE
     Indication: ATTENTION DEFICIT/HYPERACTIVITY DISORDER
     Route: 048
     Dates: start: 20111008, end: 20111023
  2. RISPERDAL [Suspect]
     Active Substance: RISPERIDONE
     Indication: MENTAL IMPAIRMENT
     Route: 048
     Dates: start: 20111008, end: 20111023
  3. RISPERDAL [Suspect]
     Active Substance: RISPERIDONE
     Indication: MENTAL IMPAIRMENT
     Route: 048
     Dates: start: 20090611, end: 20090701
  4. RISPERDAL [Suspect]
     Active Substance: RISPERIDONE
     Indication: PSYCHOTIC DISORDER
     Route: 048
     Dates: start: 20100613, end: 20101218
  5. RISPERDAL M-TAB [Suspect]
     Active Substance: RISPERIDONE
     Indication: ATTENTION DEFICIT/HYPERACTIVITY DISORDER
     Route: 048
     Dates: start: 20090613, end: 20111023
  6. RISPERDAL [Suspect]
     Active Substance: RISPERIDONE
     Indication: MENTAL IMPAIRMENT
     Route: 048
     Dates: start: 20141018
  7. RISPERDAL [Suspect]
     Active Substance: RISPERIDONE
     Indication: ATTENTION DEFICIT/HYPERACTIVITY DISORDER
     Route: 048
     Dates: start: 20130610, end: 20131202
  8. RISPERDAL [Suspect]
     Active Substance: RISPERIDONE
     Indication: PSYCHOTIC DISORDER
     Route: 048
     Dates: start: 20130117, end: 20130224
  9. RISPERIDONE. [Suspect]
     Active Substance: RISPERIDONE
     Indication: MENTAL IMPAIRMENT
     Dosage: 0.5 TO 3 MG
     Route: 048
     Dates: start: 20090611, end: 20141018
  10. RISPERDAL [Suspect]
     Active Substance: RISPERIDONE
     Indication: MENTAL IMPAIRMENT
     Route: 048
     Dates: start: 20130117, end: 20130224
  11. RISPERDAL [Suspect]
     Active Substance: RISPERIDONE
     Indication: AUTISM SPECTRUM DISORDER
     Route: 048
     Dates: start: 20110428
  12. RISPERDAL [Suspect]
     Active Substance: RISPERIDONE
     Indication: AUTISM SPECTRUM DISORDER
     Route: 048
     Dates: start: 20141018
  13. RISPERDAL [Suspect]
     Active Substance: RISPERIDONE
     Indication: ATTENTION DEFICIT/HYPERACTIVITY DISORDER
     Route: 048
     Dates: start: 20090611, end: 20090701
  14. RISPERDAL [Suspect]
     Active Substance: RISPERIDONE
     Indication: PSYCHOTIC DISORDER
     Route: 048
     Dates: start: 20110428
  15. RISPERDAL M-TAB [Suspect]
     Active Substance: RISPERIDONE
     Indication: AUTISM SPECTRUM DISORDER
     Route: 048
     Dates: start: 20090613, end: 20111023
  16. RISPERIDONE. [Suspect]
     Active Substance: RISPERIDONE
     Indication: PSYCHOTIC DISORDER
     Dosage: 0.5 TO 3 MG
     Route: 048
     Dates: start: 20090611, end: 20141018
  17. RISPERDAL [Suspect]
     Active Substance: RISPERIDONE
     Indication: MENTAL IMPAIRMENT
     Route: 048
     Dates: start: 20130610, end: 20131202
  18. RISPERDAL [Suspect]
     Active Substance: RISPERIDONE
     Indication: MENTAL IMPAIRMENT
     Route: 048
     Dates: start: 20100613, end: 20101218
  19. RISPERDAL [Suspect]
     Active Substance: RISPERIDONE
     Indication: AUTISM SPECTRUM DISORDER
     Route: 048
     Dates: start: 20100613, end: 20101218
  20. RISPERDAL [Suspect]
     Active Substance: RISPERIDONE
     Indication: ATTENTION DEFICIT/HYPERACTIVITY DISORDER
     Route: 048
     Dates: start: 20100613, end: 20101218
  21. RISPERDAL [Suspect]
     Active Substance: RISPERIDONE
     Indication: ATTENTION DEFICIT/HYPERACTIVITY DISORDER
     Route: 048
     Dates: start: 20130117, end: 20130224
  22. RISPERDAL [Suspect]
     Active Substance: RISPERIDONE
     Indication: ATTENTION DEFICIT/HYPERACTIVITY DISORDER
     Route: 048
     Dates: start: 20141018
  23. RISPERIDONE. [Suspect]
     Active Substance: RISPERIDONE
     Indication: ATTENTION DEFICIT/HYPERACTIVITY DISORDER
     Dosage: 0.5 TO 3 MG
     Route: 048
     Dates: start: 20090611, end: 20141018
  24. RISPERDAL [Suspect]
     Active Substance: RISPERIDONE
     Indication: ATTENTION DEFICIT/HYPERACTIVITY DISORDER
     Route: 048
     Dates: start: 20110428
  25. RISPERDAL [Suspect]
     Active Substance: RISPERIDONE
     Indication: PSYCHOTIC DISORDER
     Route: 048
     Dates: start: 20090611, end: 20090701
  26. RISPERDAL M-TAB [Suspect]
     Active Substance: RISPERIDONE
     Indication: MENTAL IMPAIRMENT
     Route: 048
     Dates: start: 20090613, end: 20111023
  27. RISPERDAL M-TAB [Suspect]
     Active Substance: RISPERIDONE
     Indication: PSYCHOTIC DISORDER
     Route: 048
     Dates: start: 20090613, end: 20111023
  28. RISPERDAL [Suspect]
     Active Substance: RISPERIDONE
     Indication: AUTISM SPECTRUM DISORDER
     Route: 048
     Dates: start: 20130610, end: 20131202
  29. RISPERDAL [Suspect]
     Active Substance: RISPERIDONE
     Indication: AUTISM SPECTRUM DISORDER
     Route: 048
     Dates: start: 20130117, end: 20130224
  30. RISPERDAL [Suspect]
     Active Substance: RISPERIDONE
     Indication: AUTISM SPECTRUM DISORDER
     Route: 048
     Dates: start: 20090611, end: 20090701
  31. RISPERDAL [Suspect]
     Active Substance: RISPERIDONE
     Indication: PSYCHOTIC DISORDER
     Route: 048
     Dates: start: 20141018
  32. RISPERDAL [Suspect]
     Active Substance: RISPERIDONE
     Indication: PSYCHOTIC DISORDER
     Route: 048
     Dates: start: 20130610, end: 20131202
  33. RISPERDAL [Suspect]
     Active Substance: RISPERIDONE
     Indication: MENTAL IMPAIRMENT
     Route: 048
     Dates: start: 20110428
  34. RISPERDAL [Suspect]
     Active Substance: RISPERIDONE
     Indication: AUTISM SPECTRUM DISORDER
     Route: 048
     Dates: start: 20111008, end: 20111023
  35. RISPERDAL [Suspect]
     Active Substance: RISPERIDONE
     Indication: PSYCHOTIC DISORDER
     Route: 048
     Dates: start: 20111008, end: 20111023
  36. RISPERIDONE. [Suspect]
     Active Substance: RISPERIDONE
     Indication: AUTISM SPECTRUM DISORDER
     Dosage: 0.5 TO 3 MG
     Route: 048
     Dates: start: 20090611, end: 20141018
  37. RISPERIDONE. [Suspect]
     Active Substance: RISPERIDONE
     Indication: PRODUCT USED FOR UNKNOWN INDICATION
     Route: 048

REACTIONS (2)
  - Emotional disorder [Unknown]
  - Gynaecomastia [Unknown]
